FAERS Safety Report 11130612 (Version 1)
Quarter: 2015Q2

REPORT INFORMATION
  Report Type: Spontaneous
  Country: US (occurrence: None)
  Receive Date: 20150521
  Receipt Date: 20150521
  Transmission Date: 20150821
  Serious: Yes (Hospitalization, Disabling)
  Sender: FDA-Public Use
  Company Number: None

PATIENT
  Age: 51 Year
  Sex: Female
  Weight: 115.67 kg

DRUGS (10)
  1. PACEMAKER [Concomitant]
  2. WHEELCHAIR [Concomitant]
     Active Substance: DEVICE
  3. BYETTA [Suspect]
     Active Substance: EXENATIDE
     Indication: DIABETES MELLITUS
     Dosage: TWICE DAILY, GIVEN INTO/UNDER THE SKIN
     Dates: start: 20120501, end: 20150301
  4. CYMBALTA [Concomitant]
     Active Substance: DULOXETINE HYDROCHLORIDE
  5. VICTOZA [Suspect]
     Active Substance: LIRAGLUTIDE
     Indication: WEIGHT CONTROL
     Dosage: INJECT 1.8MG PLUS 1.2 TOTAL 3M, ONCE DAILY, GIVEN INTO/UNDER THE SKIN
     Dates: start: 20120501, end: 20150428
  6. ATENALOL [Concomitant]
  7. BYETTA [Suspect]
     Active Substance: EXENATIDE
     Indication: WEIGHT CONTROL
     Dosage: TWICE DAILY, GIVEN INTO/UNDER THE SKIN
     Dates: start: 20120501, end: 20150301
  8. MULTI VITAMIN [Concomitant]
     Active Substance: VITAMINS
  9. CALCIUM CHEWS [Concomitant]
  10. VICTOZA [Suspect]
     Active Substance: LIRAGLUTIDE
     Indication: TYPE 2 DIABETES MELLITUS
     Dosage: INJECT 1.8MG PLUS 1.2 TOTAL 3M, ONCE DAILY, GIVEN INTO/UNDER THE SKIN
     Dates: start: 20120501, end: 20150428

REACTIONS (6)
  - Pain [None]
  - Cholecystitis [None]
  - Oedema [None]
  - Pancreatitis acute [None]
  - Hypersensitivity [None]
  - Diabetes mellitus [None]

NARRATIVE: CASE EVENT DATE: 20150505
